FAERS Safety Report 6156435-2 (Version None)
Quarter: 2009Q2

REPORT INFORMATION
  Report Type: 
  Country: None (occurrence: None)
  Receive Date: 20090416
  Receipt Date: 20090415
  Transmission Date: 20091009
  Serious: Yes (Death)
  Sender: FDA-Public Use
  Company Number: FR-JNJFOC-20090403515

PATIENT
  Age: 94 Year
  Sex: Male

DRUGS (4)
  1. OFLOXACIN [Suspect]
     Indication: LUNG DISORDER
     Route: 048
  2. PREDNISOLONE [Suspect]
     Indication: DRUG USE FOR UNKNOWN INDICATION
     Route: 048
  3. AUGMENTIN '125' [Suspect]
     Indication: PNEUMONIA
     Route: 048
  4. AUGMENTIN '125' [Suspect]
     Indication: URINARY RETENTION
     Dosage: DAILY DOSE: 3 U
     Route: 048

REACTIONS (1)
  - CLOSTRIDIUM DIFFICILE COLITIS [None]
